FAERS Safety Report 5598320-0 (Version None)
Quarter: 2008Q1

REPORT INFORMATION
  Report Type: 
  Country: None (occurrence: None)
  Receive Date: 20080122
  Receipt Date: 20080115
  Transmission Date: 20080703
  Serious: Yes (Hospitalization)
  Sender: FDA-Public Use
  Company Number: B0491814A

PATIENT
  Age: 60 Year
  Sex: Female
  Weight: 43 kg

DRUGS (6)
  1. LAPATINIB [Suspect]
     Indication: BREAST CANCER METASTATIC
     Dosage: 1250MG PER DAY
     Route: 048
     Dates: start: 20070910, end: 20071010
  2. CAPECITABINE [Suspect]
     Indication: BREAST CANCER METASTATIC
     Dosage: 1300MG TWICE PER DAY
     Route: 048
     Dates: start: 20070910, end: 20071010
  3. ALPRAZOLAM [Concomitant]
     Indication: ANXIETY
     Dosage: 1MG THREE TIMES PER DAY
     Route: 048
  4. OMEPRAZOLE [Concomitant]
     Indication: PROPHYLAXIS
     Route: 048
  5. MORPHINE [Concomitant]
     Indication: PAIN
     Route: 048
  6. AGIOLAX [Concomitant]
     Indication: CONSTIPATION
     Dosage: 15ML TWICE PER DAY
     Route: 048

REACTIONS (2)
  - ABDOMINAL PAIN [None]
  - DEHYDRATION [None]
